FAERS Safety Report 7309113-8 (Version None)
Quarter: 2011Q1

REPORT INFORMATION
  Report Type: 
  Country: None (occurrence: None)
  Receive Date: 20110223
  Receipt Date: 20110214
  Transmission Date: 20110831
  Serious: Yes (Other)
  Sender: FDA-Public Use
  Company Number: US-ASTRAZENECA-2011SE08653

PATIENT
  Age: 36 Year
  Sex: Male
  Weight: 68.9 kg

DRUGS (1)
  1. NEXIUM [Suspect]
     Indication: GASTRIC ULCER
     Route: 048

REACTIONS (4)
  - DRUG INEFFECTIVE [None]
  - HAEMATEMESIS [None]
  - DYSPEPSIA [None]
  - GASTRIC ULCER [None]
